FAERS Safety Report 22914743 (Version 4)
Quarter: 2023Q4

REPORT INFORMATION
  Report Type: Spontaneous
  Country: IE (occurrence: IE)
  Receive Date: 20230907
  Receipt Date: 20231007
  Transmission Date: 20240109
  Serious: Yes (Other)
  Sender: FDA-Public Use
  Company Number: IE-CELLTRION INC.-2023IE017447

PATIENT

DRUGS (1)
  1. ADALIMUMAB [Suspect]
     Active Substance: ADALIMUMAB
     Indication: Hidradenitis
     Dosage: UNK
     Route: 058

REACTIONS (2)
  - Gastric cancer [Recovered/Resolved]
  - Hidradenitis [Unknown]
